FAERS Safety Report 8093130-7 (Version None)
Quarter: 2012Q1

REPORT INFORMATION
  Report Type: 
  Country: None (occurrence: None)
  Receive Date: 20120128
  Receipt Date: 20111017
  Transmission Date: 20120608
  Serious: No
  Sender: FDA-Public Use
  Company Number: US-ABBOTT-11P-163-0841818-00

PATIENT
  Age: 55 Year
  Sex: Male

DRUGS (10)
  1. MULTI-VITAMIN [Concomitant]
     Indication: PRODUCT USED FOR UNKNOWN INDICATION
  2. HUMIRA [Suspect]
     Indication: PSORIASIS
     Dates: start: 20110617, end: 20110801
  3. BIAXIN [Suspect]
     Indication: PRODUCT USED FOR UNKNOWN INDICATION
  4. DOXYCYCLINE [Concomitant]
     Indication: PRODUCT USED FOR UNKNOWN INDICATION
  5. VIT C [Concomitant]
     Indication: PRODUCT USED FOR UNKNOWN INDICATION
  6. BENICAR [Concomitant]
     Indication: PRODUCT USED FOR UNKNOWN INDICATION
  7. CEFTIN [Suspect]
     Indication: PRODUCT USED FOR UNKNOWN INDICATION
  8. CALCIUM [Concomitant]
     Indication: PRODUCT USED FOR UNKNOWN INDICATION
  9. IRON [Concomitant]
     Indication: PRODUCT USED FOR UNKNOWN INDICATION
  10. MAGNESIUM [Concomitant]
     Indication: PRODUCT USED FOR UNKNOWN INDICATION

REACTIONS (13)
  - JOINT SWELLING [None]
  - TOOTH INFECTION [None]
  - FEELING ABNORMAL [None]
  - PAIN IN EXTREMITY [None]
  - HYPERTENSION [None]
  - OEDEMA PERIPHERAL [None]
  - MUSCULOSKELETAL STIFFNESS [None]
  - PSORIASIS [None]
  - DRUG EFFECT DECREASED [None]
  - FUNGAL INFECTION [None]
  - PAIN [None]
  - INCORRECT STORAGE OF DRUG [None]
  - RASH [None]
